FAERS Safety Report 14270273 (Version 2)
Quarter: 2018Q1

REPORT INFORMATION
  Report Type: Spontaneous
  Country: AT (occurrence: AT)
  Receive Date: 20171211
  Receipt Date: 20180111
  Transmission Date: 20180508
  Serious: Yes (Other)
  Sender: FDA-Public Use
  Company Number: AT-OTSUKA-2015_011981

PATIENT
  Age: 54 Year
  Sex: Male

DRUGS (13)
  1. ABILIFY [Suspect]
     Active Substance: ARIPIPRAZOLE
     Dosage: 15 MG, UNK
     Route: 048
     Dates: start: 20150304, end: 20150304
  2. PRAXITEN [Concomitant]
     Active Substance: OXAZEPAM
     Dosage: 60 MG, UNK
     Route: 048
     Dates: start: 20150222, end: 20150224
  3. ABILIFY [Suspect]
     Active Substance: ARIPIPRAZOLE
     Dosage: 30 MG, UNK
     Route: 048
     Dates: start: 20150302, end: 20150303
  4. PRAXITEN [Concomitant]
     Active Substance: OXAZEPAM
     Indication: PRODUCT USED FOR UNKNOWN INDICATION
     Dosage: 15 MG, UNK
     Route: 048
     Dates: start: 20150303, end: 20150305
  5. PRAXITEN [Concomitant]
     Active Substance: OXAZEPAM
     Dosage: 50 MG, QD
     Route: 048
     Dates: start: 20150214, end: 20150305
  6. PRAXITEN [Concomitant]
     Active Substance: OXAZEPAM
     Dosage: 100 MG, UNK
     Route: 048
     Dates: start: 20150215, end: 20150218
  7. PRAXITEN [Concomitant]
     Active Substance: OXAZEPAM
     Dosage: 30 MG, UNK
     Route: 048
     Dates: start: 20150302, end: 20150302
  8. PRAXITEN [Concomitant]
     Active Substance: OXAZEPAM
     Dosage: 45 MG, UNK
     Route: 048
     Dates: start: 20150225, end: 20150301
  9. PRAXITEN [Concomitant]
     Active Substance: OXAZEPAM
     Dosage: 80 MG, UNK
     Route: 048
     Dates: start: 20150218, end: 20150221
  10. ACEMIN [Concomitant]
     Active Substance: LISINOPRIL
     Indication: PRODUCT USED FOR UNKNOWN INDICATION
     Dosage: 10 MG, UNK
     Route: 048
     Dates: start: 20170227
  11. ABILIFY [Suspect]
     Active Substance: ARIPIPRAZOLE
     Indication: SCHIZOAFFECTIVE DISORDER
     Dosage: 15 MG, UNK
     Route: 048
     Dates: start: 20150115, end: 20150301
  12. ACEMIN [Concomitant]
     Active Substance: LISINOPRIL
     Dosage: 5 MG, UNK
     Route: 048
     Dates: start: 20150221, end: 20150226
  13. CHLORPROMAZINE HYDROCHLORIDE. [Concomitant]
     Active Substance: CHLORPROMAZINE HYDROCHLORIDE
     Indication: HYPERTENSION
     Dosage: UNK
     Route: 065

REACTIONS (3)
  - Salivary hypersecretion [Recovered/Resolved]
  - Parkinsonism [Recovered/Resolved]
  - Extrapyramidal disorder [Recovered/Resolved]

NARRATIVE: CASE EVENT DATE: 20150303
